FAERS Safety Report 6463935-4 (Version None)
Quarter: 2009Q4

REPORT INFORMATION
  Report Type: 
  Country: None (occurrence: None)
  Receive Date: 20091130
  Receipt Date: 20091130
  Transmission Date: 20100525
  Serious: Yes (Other)
  Sender: FDA-Public Use
  Company Number: None

PATIENT
  Age: 65 Year
  Sex: Female
  Weight: 95.2554 kg

DRUGS (2)
  1. ZETIA [Suspect]
     Indication: BLOOD CHOLESTEROL INCREASED
     Dosage: 1 - 10 MG BEDTIME
  2. SINGULAIR [Suspect]
     Indication: RESPIRATORY DISORDER
     Dosage: 1 - 10 MG BEDTIME

REACTIONS (2)
  - DRUG INEFFECTIVE [None]
  - MYALGIA [None]
